FAERS Safety Report 13554521 (Version 1)
Quarter: 2017Q2

REPORT INFORMATION
  Report Type: Spontaneous
  Country: US (occurrence: US)
  Receive Date: 20170516
  Receipt Date: 20170516
  Transmission Date: 20170830
  Serious: Yes (Other)
  Sender: FDA-Public Use
  Company Number: None

PATIENT
  Age: 71 Year
  Sex: Female
  Weight: 58.05 kg

DRUGS (7)
  1. RELPAX [Concomitant]
     Active Substance: ELETRIPTAN HYDROBROMIDE
  2. FISH OIL [Concomitant]
     Active Substance: FISH OIL
  3. METOPROLOL. [Concomitant]
     Active Substance: METOPROLOL
  4. RESTASIS [Concomitant]
     Active Substance: CYCLOSPORINE
  5. CALCIUM SUPPLEMENT [Concomitant]
     Active Substance: CALCIUM
  6. VITAMIN D [Concomitant]
     Active Substance: CHOLECALCIFEROL
  7. PROLIA [Suspect]
     Active Substance: DENOSUMAB
     Indication: OSTEOPOROSIS
     Dosage: QUANTITY:1 INJECTION(S);OTHER FREQUENCY:1 EVERY 6 MONTHS;?
     Route: 058
     Dates: start: 20170315, end: 20170315

REACTIONS (4)
  - Pain [None]
  - Back pain [None]
  - Influenza like illness [None]
  - Vasculitis [None]

NARRATIVE: CASE EVENT DATE: 20170317
